FAERS Safety Report 6356821-1 (Version None)
Quarter: 2009Q3

REPORT INFORMATION
  Report Type: 
  Country: None (occurrence: None)
  Receive Date: 20090911
  Receipt Date: 20090911
  Transmission Date: 20100115
  Serious: Yes (Disabling)
  Sender: FDA-Public Use
  Company Number: None

PATIENT
  Sex: Female
  Weight: 51.7101 kg

DRUGS (4)
  1. RECLAST [Suspect]
     Indication: OSTEOPOROSIS
     Dosage: ONCE YEARLY 041  (15 MINUTE I.V. DRIP)
  2. CRESTOR [Concomitant]
  3. FOSAMAX PLUS D [Concomitant]
  4. ASPIRIN [Concomitant]

REACTIONS (6)
  - ABASIA [None]
  - ARTHRALGIA [None]
  - DECREASED ACTIVITY [None]
  - GRIP STRENGTH DECREASED [None]
  - MUSCULOSKELETAL PAIN [None]
  - MYALGIA [None]
